FAERS Safety Report 7498526-X (Version None)
Quarter: 2011Q2

REPORT INFORMATION
  Report Type: 
  Country: None (occurrence: None)
  Receive Date: 20110524
  Receipt Date: 20110518
  Transmission Date: 20111010
  Serious: Yes (Hospitalization, Other)
  Sender: FDA-Public Use
  Company Number: KR-BAYER-2011-043281

PATIENT
  Age: 24 Year
  Sex: Female

DRUGS (1)
  1. NIMODIPINE [Suspect]
     Indication: CEREBROVASCULAR SPASM
     Dosage: 4 MG, UNK, 2-4 ML PER MINUTE

REACTIONS (1)
  - VASOGENIC CEREBRAL OEDEMA [None]
